FAERS Safety Report 14416386 (Version 1)
Quarter: 2018Q1

REPORT INFORMATION
  Report Type: Spontaneous
  Country: US (occurrence: US)
  Receive Date: 20180122
  Receipt Date: 20180122
  Transmission Date: 20180509
  Serious: No
  Sender: FDA-Public Use
  Company Number: US-ASTRAZENECA-2018SE07614

PATIENT
  Sex: Female

DRUGS (1)
  1. SYMBICORT [Suspect]
     Active Substance: BUDESONIDE\FORMOTEROL FUMARATE DIHYDRATE
     Indication: ASTHMA
     Dosage: 160/4.5 MCG, TWO PUFFS TWICE PER DAY
     Route: 055
     Dates: start: 2015

REACTIONS (3)
  - Glossodynia [Unknown]
  - Pharyngeal erythema [Unknown]
  - Candida infection [Unknown]

NARRATIVE: CASE EVENT DATE: 201801
